FAERS Safety Report 7285649-3 (Version None)
Quarter: 2011Q1

REPORT INFORMATION
  Report Type: 
  Country: None (occurrence: None)
  Receive Date: 20110210
  Receipt Date: 20110204
  Transmission Date: 20110831
  Serious: Yes (Other)
  Sender: FDA-Public Use
  Company Number: A0911992A

PATIENT
  Age: 60 Year
  Sex: Female

DRUGS (2)
  1. UNKNOWN MEDICATION [Concomitant]
  2. LOVAZA [Suspect]
     Indication: BLOOD CHOLESTEROL INCREASED
     Dosage: 2G TWICE PER DAY
     Route: 048
     Dates: start: 20070101, end: 20110118

REACTIONS (5)
  - ABDOMINAL PAIN UPPER [None]
  - HEPATOTOXICITY [None]
  - HEPATIC NEOPLASM [None]
  - DRUG INEFFECTIVE [None]
  - FATIGUE [None]
